FAERS Safety Report 22181101 (Version 1)
Quarter: 2023Q2

REPORT INFORMATION
  Report Type: Report from Study
  Country: IE (occurrence: IE)
  Receive Date: 20230406
  Receipt Date: 20230406
  Transmission Date: 20230722
  Serious: Yes (Hospitalization)
  Sender: FDA-Public Use
  Company Number: None

PATIENT
  Age: 67 Year
  Sex: Female
  Weight: 57.2 kg

DRUGS (17)
  1. DOXORUBICIN [Suspect]
     Active Substance: DOXORUBICIN
     Indication: Diffuse large B-cell lymphoma
     Dosage: 2.38 MILLIGRAM/SQ. METER, Q21D
     Route: 042
     Dates: start: 20160106
  2. DOXORUBICIN [Suspect]
     Active Substance: DOXORUBICIN
     Dosage: 2.38 MILLIGRAM/SQ. METER, Q21D
     Route: 042
     Dates: start: 20160830
  3. CYCLOPHOSPHAMIDE [Suspect]
     Active Substance: CYCLOPHOSPHAMIDE
     Indication: Diffuse large B-cell lymphoma
     Dosage: 53.33 MILLIGRAM, Q21D
     Route: 042
     Dates: start: 20160106
  4. CYCLOPHOSPHAMIDE [Suspect]
     Active Substance: CYCLOPHOSPHAMIDE
     Dosage: 750 MILLIGRAM/SQ. METER, Q21D
     Route: 042
     Dates: start: 20160830
  5. VINCRISTINE [Suspect]
     Active Substance: VINCRISTINE
     Indication: Diffuse large B-cell lymphoma
     Dosage: 0.07 MILLIGRAM/SQ. METER, Q21D
     Route: 048
     Dates: start: 20160106
  6. VINCRISTINE [Suspect]
     Active Substance: VINCRISTINE
     Indication: Diffuse large B-cell lymphoma
     Dosage: 0.07 MILLIGRAM/SQ. METER, Q21D
     Route: 042
     Dates: start: 20160830
  7. LENALIDOMIDE [Suspect]
     Active Substance: LENALIDOMIDE
     Indication: Diffuse large B-cell lymphoma
     Dosage: UNK, IN EVERY 14 DAYS
     Route: 042
     Dates: start: 20160106, end: 201608
  8. PREDNISONE [Suspect]
     Active Substance: PREDNISONE
     Indication: Diffuse large B-cell lymphoma
     Dosage: 20 MILLIGRAM, Q5D
     Route: 065
     Dates: start: 20160106
  9. PREDNISONE [Suspect]
     Active Substance: PREDNISONE
     Dosage: 20 MILLIGRAM, Q5D
     Route: 048
     Dates: start: 20160830
  10. RITUXIMAB [Suspect]
     Active Substance: RITUXIMAB
     Indication: Diffuse large B-cell lymphoma
     Dosage: 26.67 MILLIGRAM/SQ. METER, Q21D
     Route: 042
     Dates: start: 20160106
  11. RITUXIMAB [Suspect]
     Active Substance: RITUXIMAB
     Dosage: 17.86 MILLIGRAM/SQ. METER, Q21D, (375 MG/M2)
     Route: 042
     Dates: start: 20160830
  12. POTASSIUM CHLORIDE [Concomitant]
     Active Substance: POTASSIUM CHLORIDE
     Dosage: UNK
     Route: 065
  13. AMLODIPINE [Concomitant]
     Active Substance: AMLODIPINE BESYLATE
     Dosage: UNK
     Route: 065
     Dates: end: 20160905
  14. NYSTATIN [Concomitant]
     Active Substance: NYSTATIN
     Dosage: UNK
     Route: 065
     Dates: start: 20160106
  15. SLOW K [Concomitant]
     Active Substance: POTASSIUM CHLORIDE
     Dosage: UNK
     Route: 065
     Dates: end: 20160907
  16. LANSOPRAZOLE [Concomitant]
     Active Substance: LANSOPRAZOLE
     Dosage: UNK
     Route: 065
     Dates: start: 20160106
  17. CYCLIZINE [Concomitant]
     Active Substance: CYCLIZINE
     Dosage: UNK
     Route: 065
     Dates: start: 20160907, end: 20160912

REACTIONS (4)
  - Hypothermia [Recovered/Resolved]
  - Vomiting [Recovered/Resolved]
  - Diarrhoea [Recovered/Resolved]
  - Nausea [Recovered/Resolved]

NARRATIVE: CASE EVENT DATE: 20160905
